FAERS Safety Report 8311144-6 (Version None)
Quarter: 2012Q2

REPORT INFORMATION
  Report Type: 
  Country: None (occurrence: None)
  Receive Date: 20120425
  Receipt Date: 20120418
  Transmission Date: 20120825
  Serious: Yes (Other)
  Sender: FDA-Public Use
  Company Number: GB-ASTRAZENECA-2012SE25535

PATIENT
  Age: 20 Year
  Sex: Female

DRUGS (3)
  1. SERTRALINE HYDROCHLORIDE [Concomitant]
  2. QUETIAPINE [Suspect]
     Route: 048
  3. CLOZAPINE [Interacting]
     Route: 048
     Dates: start: 20120405, end: 20120407

REACTIONS (4)
  - DIZZINESS [None]
  - DRUG INTERACTION [None]
  - TACHYCARDIA [None]
  - HYPOTENSION [None]
